FAERS Safety Report 8475354-X (Version None)
Quarter: 2012Q2

REPORT INFORMATION
  Report Type: 
  Country: None (occurrence: None)
  Receive Date: 20120628
  Receipt Date: 20120614
  Transmission Date: 20120825
  Serious: Yes (Hospitalization)
  Sender: FDA-Public Use
  Company Number: AT-ROCHE-1079613

PATIENT
  Sex: Female
  Weight: 63.1 kg

DRUGS (8)
  1. ENALAPRIL MALEATE [Concomitant]
     Dates: start: 20110101
  2. CARBOPLATIN [Suspect]
     Indication: OVARIAN CANCER
     Dosage: LAST DOSE PRIOR TO EVENT: 13/JAN/2012
     Route: 042
     Dates: start: 20110930
  3. MAGNOSOLV [Concomitant]
     Dosage: 2 BAG
     Dates: start: 20110101
  4. VENDAL [Concomitant]
     Dates: start: 20110101
  5. AVASTIN [Suspect]
     Indication: OVARIAN CANCER
     Dosage: LAST DOSE PRIOR TO EVENT: 06/JUN/2012
     Route: 042
     Dates: start: 20111021, end: 20120613
  6. PANTOPRAZOLE SODIUM [Concomitant]
     Dates: start: 20110101
  7. PACLITAXEL [Suspect]
     Indication: OVARIAN CANCER
     Dosage: LAST DOSE PRIOR TO EVENT:13/JAN/2012
     Route: 042
     Dates: start: 20110930
  8. MOVIPREP [Concomitant]
     Dosage: 1 BAG
     Dates: start: 20120101

REACTIONS (1)
  - MALLORY-WEISS SYNDROME [None]
